FAERS Safety Report 4430498-4 (Version None)
Quarter: 2004Q3

REPORT INFORMATION
  Report Type: 
  Country: None (occurrence: None)
  Receive Date: 20040721
  Receipt Date: 20031208
  Transmission Date: 20050211
  Serious: Yes (Life-Threatening, Hospitalization, Other)
  Sender: FDA-Public Use
  Company Number: WAES 0312USA00928

PATIENT
  Age: 57 Year
  Sex: Male
  Weight: 81.6475 kg

DRUGS (9)
  1. VIOXX [Suspect]
     Indication: GOUT
     Dosage: 25 MG/DAILY/PO; SEE IMAGE
     Route: 048
     Dates: start: 20030901, end: 20030901
  2. VIOXX [Suspect]
     Indication: GOUT
     Dosage: 25 MG/DAILY/PO; SEE IMAGE
     Route: 048
     Dates: start: 20030901, end: 20031117
  3. AVALIDE [Concomitant]
  4. AVAPRO [Concomitant]
  5. GLUCOPHAGE [Concomitant]
  6. TRICOR [Concomitant]
  7. ALLOPURINOL [Concomitant]
  8. FISH OIL [Concomitant]
  9. MULTIVITAMIN [Concomitant]

REACTIONS (2)
  - DUODENAL ULCER HAEMORRHAGE [None]
  - GASTRIC POLYPS [None]
